FAERS Safety Report 7384633-9 (Version None)
Quarter: 2011Q1

REPORT INFORMATION
  Report Type: 
  Country: None (occurrence: None)
  Receive Date: 20110330
  Receipt Date: 20101227
  Transmission Date: 20110831
  Serious: No
  Sender: FDA-Public Use
  Company Number: US-BAYER-2011-025409

PATIENT
  Sex: Female
  Weight: 61 kg

DRUGS (2)
  1. SYNTHROID [Concomitant]
  2. ALKA-SELTZER PLUS COLD FORMULA SPARKLING ORIGINAL [Suspect]
     Indication: NASOPHARYNGITIS
     Dosage: UNK
     Dates: start: 20101223

REACTIONS (1)
  - NASOPHARYNGITIS [None]
